FAERS Safety Report 20554062 (Version 1)
Quarter: 2022Q1

REPORT INFORMATION
  Report Type: Spontaneous
  Country: US (occurrence: US)
  Receive Date: 20220304
  Receipt Date: 20220304
  Transmission Date: 20220423
  Serious: No
  Sender: FDA-Public Use
  Company Number: US-PFIZER INC-2021739792

PATIENT
  Sex: Female

DRUGS (1)
  1. BRAFTOVI [Suspect]
     Active Substance: ENCORAFENIB
     Dosage: UNK UNK, DAILY (4 - 75MG CAPSULE BY MOUTH, DAILY)
     Route: 048

REACTIONS (1)
  - Dysphagia [Unknown]
